FAERS Safety Report 7996520-3 (Version None)
Quarter: 2011Q4

REPORT INFORMATION
  Report Type: 
  Country: None (occurrence: None)
  Receive Date: 20111220
  Receipt Date: 20111207
  Transmission Date: 20120403
  Serious: Yes (Other)
  Sender: FDA-Public Use
  Company Number: US-CELGENEUS-163-21660-11121024

PATIENT

DRUGS (6)
  1. ABRAXANE [Suspect]
     Dosage: 30 MILLIGRAM/SQ. METER
     Route: 065
  2. ABRAXANE [Suspect]
     Dosage: 40 MILLIGRAM/SQ. METER
     Route: 065
  3. ABRAXANE [Suspect]
     Dosage: 20 MILLIGRAM/SQ. METER
     Route: 065
  4. ABRAXANE [Suspect]
     Dosage: 50 MILLIGRAM/SQ. METER
     Route: 065
  5. CARBOPLATIN [Suspect]
     Route: 065
  6. IMRT [Suspect]
     Route: 065

REACTIONS (3)
  - DYSPHAGIA [None]
  - DERMATITIS [None]
  - MUCOSAL INFLAMMATION [None]
